FAERS Safety Report 10442523 (Version 1)
Quarter: 2014Q3

REPORT INFORMATION
  Report Type: Spontaneous
  Country: JP (occurrence: JP)
  Receive Date: 20140909
  Receipt Date: 20140909
  Transmission Date: 20150326
  Serious: No
  Sender: FDA-Public Use
  Company Number: PHHY2013JP162426

PATIENT
  Age: 90 Year
  Sex: Male

DRUGS (7)
  1. ANISTO [Concomitant]
     Dosage: 10 MG
  2. FUROSEMIDE. [Concomitant]
     Active Substance: FUROSEMIDE
     Dosage: 20 MG
  3. OLMETEC [Concomitant]
     Active Substance: OLMESARTAN MEDOXOMIL
     Dosage: 20 MG
  4. CONIPROS [Concomitant]
     Dosage: 4 MG
  5. TASIGNA [Suspect]
     Active Substance: NILOTINIB
     Indication: CHRONIC MYELOID LEUKAEMIA
     Dosage: UNK UKN, UNK
  6. GLIMEPIRIDE. [Concomitant]
     Active Substance: GLIMEPIRIDE
     Dosage: 1 MG
  7. SOCWARL [Concomitant]
     Dosage: UNK UKN, UNK

REACTIONS (7)
  - Dyspnoea [Unknown]
  - Pruritus [Unknown]
  - Anaemia [Unknown]
  - Nausea [Unknown]
  - Oedema [Unknown]
  - Pleural effusion [Unknown]
  - Neutropenia [Unknown]
